FAERS Safety Report 21401630 (Version 1)
Quarter: 2022Q3

REPORT INFORMATION
  Report Type: Spontaneous
  Country: US (occurrence: None)
  Receive Date: 20220930
  Receipt Date: 20220930
  Transmission Date: 20221027
  Serious: Yes (Other)
  Sender: FDA-Public Use
  Company Number: None

PATIENT
  Age: 17 Year
  Sex: Female
  Weight: 53.52 kg

DRUGS (1)
  1. DEXMETHYLPHENIDATE [Suspect]
     Active Substance: DEXMETHYLPHENIDATE
     Indication: Hypertension
     Dosage: 20MG ONCE DAILY ORAL?
     Route: 048
     Dates: start: 20201104, end: 20220928

REACTIONS (1)
  - Hypertension [None]

NARRATIVE: CASE EVENT DATE: 20220907
